FAERS Safety Report 8880723 (Version 1)
Quarter: 2012Q4

REPORT INFORMATION
  Report Type: 
  Country: CA (occurrence: CA)
  Receive Date: 20121101
  Receipt Date: 20121101
  Transmission Date: 20130627
  Serious: Yes (Life-Threatening, Other)
  Sender: FDA-Public Use
  Company Number: CA-GLAXOSMITHKLINE-A0999235A

PATIENT
  Age: 70 Year
  Sex: Male
  Weight: 91.4 kg

DRUGS (7)
  1. AVANDIA [Suspect]
     Indication: PRODUCT USED FOR UNKNOWN INDICATION
     Dosage: 4MG Unknown
     Route: 048
  2. ASA [Concomitant]
  3. DIAMICRON [Concomitant]
  4. DICLOFENAC [Concomitant]
  5. EZETROL [Concomitant]
  6. METFORMIN [Concomitant]
  7. TERAZOSIN [Concomitant]

REACTIONS (1)
  - Bladder cancer [Recovered/Resolved]
